FAERS Safety Report 9448964 (Version 7)
Quarter: 2014Q3

REPORT INFORMATION
  Report Type: Spontaneous
  Country: JP (occurrence: None)
  Receive Date: 20130806
  Receipt Date: 20140812
  Transmission Date: 20150326
  Serious: Yes (Hospitalization, Other)
  Sender: FDA-Public Use
  Company Number: ADR-2013-01300

PATIENT
  Age: 11 Year
  Sex: Female
  Weight: 17 kg

DRUGS (7)
  1. TEMELIN [Concomitant]
  2. STEROID [Suspect]
     Active Substance: UNSPECIFIED INGREDIENT
     Dates: start: 20130717, end: 20130816
  3. GABALON DEPAKENE [Concomitant]
  4. MYSTAN [Concomitant]
     Active Substance: CLOBAZAM
  5. GABALON INTRATHECAL [Suspect]
     Active Substance: BACLOFEN
     Dosage: 60 MCG/DAY
     Dates: start: 20130513
  6. PHENOBAL [Concomitant]
     Active Substance: PHENOBARBITAL
  7. BOTOX [Concomitant]
     Active Substance: ONABOTULINUMTOXINA

REACTIONS (17)
  - Withdrawal syndrome [None]
  - Device kink [None]
  - Device dislocation [None]
  - Malaise [None]
  - Allergy to metals [None]
  - Nausea [None]
  - Hydrocephalus [None]
  - Brain oedema [None]
  - Implant site extravasation [None]
  - Fluid retention [None]
  - Hypersensitivity [None]
  - Drug ineffective [None]
  - Pallor [None]
  - Erythema [None]
  - Cerebrospinal fluid leakage [None]
  - Reaction to drug excipients [None]
  - Blood glucose decreased [None]
